FAERS Safety Report 8859240 (Version 1)
Quarter: 2012Q4

REPORT INFORMATION
  Report Type: 
  Country: FR (occurrence: FR)
  Receive Date: 20121024
  Receipt Date: 20121024
  Transmission Date: 20130627
  Serious: Yes (Other)
  Sender: FDA-Public Use
  Company Number: FR-ELI_LILLY_AND_COMPANY-FR201210005471

PATIENT
  Age: 50 Year
  Sex: Male

DRUGS (1)
  1. EFIENT [Suspect]

REACTIONS (1)
  - Petit mal epilepsy [Unknown]
